FAERS Safety Report 4351869-0 (Version None)
Quarter: 2004Q2

REPORT INFORMATION
  Report Type: 
  Country: None (occurrence: None)
  Receive Date: 20040428
  Receipt Date: 20040416
  Transmission Date: 20050107
  Serious: Yes (Death, Hospitalization)
  Sender: FDA-Public Use
  Company Number: 163-20785-04040429

PATIENT
  Age: 53 Year
  Sex: Male

DRUGS (1)
  1. THALOMID [Suspect]
     Indication: MULTIPLE MYELOMA
     Dosage: 100 MG, DAILY, ORAL
     Route: 048
     Dates: start: 20040206, end: 20040201

REACTIONS (3)
  - HYPERCALCAEMIA [None]
  - PULMONARY EMBOLISM [None]
  - RESPIRATORY FAILURE [None]
